FAERS Safety Report 5266379-6 (Version None)
Quarter: 2007Q1

REPORT INFORMATION
  Report Type: 
  Country: None (occurrence: None)
  Receive Date: 20070315
  Receipt Date: 20070302
  Transmission Date: 20070707
  Serious: Yes (Other)
  Sender: FDA-Public Use
  Company Number: GB-ELI_LILLY_AND_COMPANY-GB200701003162

PATIENT
  Age: 10 Year
  Sex: Male
  Weight: 31 kg

DRUGS (3)
  1. STRATTERA [Suspect]
     Indication: ATTENTION DEFICIT/HYPERACTIVITY DISORDER
     Dosage: 40 MG, DAILY (1/D)
     Route: 048
  2. STRATTERA [Suspect]
     Dosage: 40 MG, UNK
     Route: 048
     Dates: start: 20060701
  3. STRATTERA [Suspect]
     Dosage: 30 MG, UNK
     Route: 048
     Dates: start: 20060101, end: 20070104

REACTIONS (11)
  - CONFUSIONAL STATE [None]
  - CYANOSIS [None]
  - DEPRESSION [None]
  - FEELING ABNORMAL [None]
  - FEELING COLD [None]
  - LOSS OF CONSCIOUSNESS [None]
  - MALAISE [None]
  - NASOPHARYNGITIS [None]
  - PALLOR [None]
  - PULSE ABSENT [None]
  - UNRESPONSIVE TO STIMULI [None]
